FAERS Safety Report 26110860 (Version 1)
Quarter: 2025Q4

REPORT INFORMATION
  Report Type: Spontaneous
  Country: CL (occurrence: CL)
  Receive Date: 20251202
  Receipt Date: 20251202
  Transmission Date: 20260117
  Serious: Yes (Other)
  Sender: JOHNSON AND JOHNSON
  Company Number: CL-JNJFOC-20251166582

PATIENT
  Age: 4 Decade
  Sex: Male

DRUGS (3)
  1. TREMFYA [Suspect]
     Active Substance: GUSELKUMAB
     Indication: Psoriasis
     Dates: start: 2023
  2. TREMFYA [Suspect]
     Active Substance: GUSELKUMAB
  3. LEVOTHYROXINE [Concomitant]
     Active Substance: LEVOTHYROXINE
     Indication: Product used for unknown indication

REACTIONS (5)
  - Hypothyroidism [Unknown]
  - Myalgia [Unknown]
  - Asthenia [Unknown]
  - Bone pain [Unknown]
  - Off label use [Unknown]
